FAERS Safety Report 9270388 (Version 2)
Quarter: 2013Q2

REPORT INFORMATION
  Report Type: Report from Study
  Country: DE (occurrence: DE)
  Receive Date: 20130503
  Receipt Date: 20130514
  Transmission Date: 20140414
  Serious: Yes (Hospitalization, Other)
  Sender: FDA-Public Use
  Company Number: DE-INCYTE CORPORATION-2013IN000893

PATIENT
  Sex: Male
  Weight: 75 kg

DRUGS (8)
  1. JAKAVI [Suspect]
     Indication: MYELOFIBROSIS
     Dosage: 30 MG, QD
     Route: 048
     Dates: start: 20130211
  2. JAKAVI [Suspect]
     Dosage: 40 MG, QD
     Route: 048
     Dates: start: 20130218, end: 20130303
  3. JAKAVI [Suspect]
     Dosage: 30 MG, QD
     Route: 048
     Dates: start: 20130304, end: 20130311
  4. JAKAVI [Suspect]
     Dosage: 10 MG, QD
     Route: 048
     Dates: start: 20130312, end: 20130318
  5. JAKAVI [Suspect]
     Dosage: UNK, QD
     Route: 048
     Dates: start: 20130319, end: 20130324
  6. JAKAVI [Suspect]
     Dosage: 10 MG, QD
     Route: 048
     Dates: start: 20130325
  7. ALLOPURINOL [Concomitant]
     Dosage: UNK
     Dates: start: 200907
  8. NOVAMINSULFON [Concomitant]
     Dosage: UNK
     Dates: start: 20130129, end: 20130215

REACTIONS (1)
  - Coronary artery disease [Not Recovered/Not Resolved]
